FAERS Safety Report 9794319 (Version 1)
Quarter: 2014Q1

REPORT INFORMATION
  Report Type: Spontaneous
  Country: SA (occurrence: SA)
  Receive Date: 20140102
  Receipt Date: 20140102
  Transmission Date: 20141002
  Serious: Yes (Other)
  Sender: FDA-Public Use
  Company Number: SA-PFIZER INC-2014000064

PATIENT
  Age: 33 Year
  Sex: Male

DRUGS (4)
  1. METHYLPREDNISOLONE [Suspect]
     Indication: HODGKIN^S DISEASE
     Dosage: 250 MG DAILY FOR 4 DAYS
     Route: 042
  2. METHYLPREDNISOLONE [Suspect]
     Dosage: 500 MG DAILY FOR 4 DAYS (3RD CYCLE IN TOTAL)
     Route: 042
  3. CYTARABINE [Suspect]
     Indication: HODGKIN^S DISEASE
     Dosage: 2 G/M2 ON DAY 5 (3RD CYCLE IN TOTAL)
     Route: 042
  4. CISPLATIN [Suspect]
     Indication: HODGKIN^S DISEASE
     Dosage: 25 MG/M2 CONTINUOUS INFUSION FOR 4 DAYS (3RD CYCLE IN TOTAL)
     Route: 042

REACTIONS (3)
  - Renal failure acute [Unknown]
  - Febrile neutropenia [Unknown]
  - Klebsiella test positive [Unknown]
